FAERS Safety Report 9286932 (Version 1)
Quarter: 2013Q2

REPORT INFORMATION
  Report Type: Spontaneous
  Country: CZ (occurrence: None)
  Receive Date: 20130508
  Receipt Date: 20130508
  Transmission Date: 20140414
  Serious: Yes (Other)
  Sender: FDA-Public Use
  Company Number: AUR-APL-2013-03805

PATIENT
  Age: 27 Year
  Sex: Male

DRUGS (3)
  1. LAMOTRIGINE (LAMOTRIGINE) [Suspect]
     Indication: GRAND MAL CONVULSION
  2. LEVETIRACETAM [Suspect]
     Indication: GRAND MAL CONVULSION
     Dosage: 3000 MG, 1 IN 1 D
  3. CARBAMAZEPINE [Suspect]
     Indication: GRAND MAL CONVULSION
     Dosage: 900 MG 1 IN 1 D

REACTIONS (2)
  - Drug ineffective [None]
  - Convulsion [None]
